FAERS Safety Report 7076409-7 (Version None)
Quarter: 2010Q4

REPORT INFORMATION
  Report Type: 
  Country: None (occurrence: None)
  Receive Date: 20101022
  Receipt Date: 20101007
  Transmission Date: 20110411
  Serious: Yes (Hospitalization)
  Sender: FDA-Public Use
  Company Number: 020018

PATIENT
  Sex: Male
  Weight: 70.8 kg

DRUGS (6)
  1. CIMZIA [Suspect]
     Indication: CROHN'S DISEASE
     Dosage: 400 MG 1X/2 WEEKS, TWICE MONTHY SUBCUTANEOUS)
     Route: 058
     Dates: start: 20101002
  2. PAXIL [Concomitant]
  3. SYNTHROID [Concomitant]
  4. PREDNISONE [Concomitant]
  5. ANDROGEL [Concomitant]
  6. CODEINE SUL TAB [Concomitant]

REACTIONS (6)
  - BLOOD PRESSURE INCREASED [None]
  - DEHYDRATION [None]
  - HEADACHE [None]
  - NAUSEA [None]
  - VOMITING [None]
  - WEIGHT DECREASED [None]
